FAERS Safety Report 9898002 (Version 7)
Quarter: 2014Q4

REPORT INFORMATION
  Report Type: Spontaneous
  Country: US (occurrence: US)
  Receive Date: 20140214
  Receipt Date: 20141209
  Transmission Date: 20150529
  Serious: Yes (Hospitalization, Disabling, Other)
  Sender: FDA-Public Use
  Company Number: US-009507513-1204USA04184

PATIENT
  Sex: Female
  Weight: 59.41 kg

DRUGS (7)
  1. FOSAMAX [Suspect]
     Active Substance: ALENDRONATE SODIUM
     Indication: OSTEOPOROSIS
     Dosage: 10 MG, QD
     Route: 048
     Dates: start: 1996
  2. ALENDRONATE SODIUM. [Suspect]
     Active Substance: ALENDRONATE SODIUM
     Dosage: 70 MG, UNK
     Dates: start: 20080428
  3. FOSAMAX [Suspect]
     Active Substance: ALENDRONATE SODIUM
     Dosage: 70 MG, QW
     Route: 048
     Dates: start: 20030410, end: 200808
  4. FOSAMAX [Suspect]
     Active Substance: ALENDRONATE SODIUM
     Dosage: 70 MG, QW
     Route: 048
     Dates: start: 20020107, end: 20021129
  5. FLORINEF ACETATE [Concomitant]
     Active Substance: FLUDROCORTISONE ACETATE
     Dosage: 0.05 MG, TIW
     Route: 048
     Dates: start: 1992
  6. PREDNISONE. [Concomitant]
     Active Substance: PREDNISONE
     Dosage: 1 MG QAM, 0.5 MG QPM-5MG QD
     Route: 048
     Dates: start: 1992
  7. SYNTHROID [Concomitant]
     Active Substance: LEVOTHYROXINE SODIUM
     Dosage: 50 MICROGRAM QD, 2 ON SUNDAY
     Route: 048
     Dates: start: 1992

REACTIONS (46)
  - Spinal fusion surgery [Unknown]
  - Spinal fusion surgery [Unknown]
  - Vitamin B12 deficiency [Unknown]
  - Asthenia [Unknown]
  - Spinal fusion surgery [Unknown]
  - Wound [Unknown]
  - Hypercalcaemia [Unknown]
  - Skin atrophy [Unknown]
  - Increased tendency to bruise [Unknown]
  - Contusion [Unknown]
  - Rheumatoid arthritis [Unknown]
  - Intramedullary rod insertion [Unknown]
  - Pernicious anaemia [Unknown]
  - Macular degeneration [Unknown]
  - Sleep apnoea syndrome [Unknown]
  - Carpal tunnel decompression [Unknown]
  - Rotator cuff repair [Unknown]
  - Intervertebral disc degeneration [Unknown]
  - Osteoarthritis [Unknown]
  - Skin cancer [Unknown]
  - Spinal compression fracture [Unknown]
  - Fatigue [Unknown]
  - Spinal column stenosis [Unknown]
  - Post laminectomy syndrome [Unknown]
  - Carpal tunnel decompression [Unknown]
  - Intramedullary rod insertion [Not Recovered/Not Resolved]
  - Foot fracture [Unknown]
  - Impaired healing [Unknown]
  - Overdose [Unknown]
  - Vitamin D deficiency [Unknown]
  - Laceration [Unknown]
  - Uterine dilation and curettage [Unknown]
  - Surgery [Unknown]
  - Loss of consciousness [Unknown]
  - Femur fracture [Recovered/Resolved]
  - Joint surgery [Unknown]
  - Road traffic accident [Unknown]
  - Osteopenia [Unknown]
  - Muscular weakness [Unknown]
  - Dizziness [Recovering/Resolving]
  - Femur fracture [Not Recovered/Not Resolved]
  - Femur fracture [Unknown]
  - Postmenopausal haemorrhage [Unknown]
  - Blepharoplasty [Unknown]
  - Weight increased [Unknown]
  - Pain in extremity [Unknown]

NARRATIVE: CASE EVENT DATE: 1999
